FAERS Safety Report 8202517-0 (Version None)
Quarter: 2012Q1

REPORT INFORMATION
  Report Type: 
  Country: None (occurrence: None)
  Receive Date: 20120312
  Receipt Date: 20120302
  Transmission Date: 20120608
  Serious: Yes (Death, Other)
  Sender: FDA-Public Use
  Company Number: US-PURDUE-USA-2012-0081367

PATIENT
  Sex: Female
  Weight: 52.608 kg

DRUGS (3)
  1. ISOPROPYL ALCOHOL [Suspect]
     Indication: SUBSTANCE ABUSE
  2. COCAINE [Suspect]
     Indication: SUBSTANCE ABUSE
  3. OXYCONTIN [Suspect]
     Indication: DRUG ABUSE

REACTIONS (2)
  - GUN SHOT WOUND [None]
  - SUBSTANCE ABUSE [None]
